FAERS Safety Report 25040434 (Version 1)
Quarter: 2025Q1

REPORT INFORMATION
  Report Type: Spontaneous
  Country: CZ (occurrence: CZ)
  Receive Date: 20250305
  Receipt Date: 20250305
  Transmission Date: 20250409
  Serious: Yes (Other)
  Sender: AMGEN
  Company Number: CZ-UCBSA-2025011461

PATIENT

DRUGS (1)
  1. EVENITY [Suspect]
     Active Substance: ROMOSOZUMAB-AQQG
     Indication: Osteoporosis
     Route: 065

REACTIONS (6)
  - Metastases to liver [Unknown]
  - Metastases to lung [Unknown]
  - Pancreatic neoplasm [Unknown]
  - Retroperitoneal lymphadenopathy [Unknown]
  - Back pain [Unknown]
  - Abdominal pain [Unknown]
